FAERS Safety Report 9779284 (Version 1)
Quarter: 2013Q4

REPORT INFORMATION
  Report Type: Spontaneous
  Country: US (occurrence: US)
  Receive Date: 20131223
  Receipt Date: 20131223
  Transmission Date: 20140711
  Serious: No
  Sender: FDA-Public Use
  Company Number: US-PFIZER INC-2013365142

PATIENT
  Age: 67 Year
  Sex: Female
  Weight: 67.12 kg

DRUGS (5)
  1. CHANTIX [Suspect]
     Indication: SMOKING CESSATION THERAPY
     Dosage: UNK
     Route: 048
  2. LOSARTAN POTASSIUM [Concomitant]
     Indication: HYPERTENSION
     Dosage: 100 MG, DAILY
  3. HYDROCHLOROTHIAZIDE [Concomitant]
     Indication: HYPERTENSION
     Dosage: 50 MG, DAILY
  4. LAMICTAL [Concomitant]
     Indication: DEPRESSION
     Dosage: 200 MG, DAILY
  5. LEXAPRO [Concomitant]
     Indication: DEPRESSION
     Dosage: 20 MG, UNK

REACTIONS (1)
  - Abnormal dreams [Recovered/Resolved]
